FAERS Safety Report 8307312-X (Version None)
Quarter: 2012Q2

REPORT INFORMATION
  Report Type: 
  Country: None (occurrence: None)
  Receive Date: 20120420
  Receipt Date: 20120406
  Transmission Date: 20120825
  Serious: Yes (Hospitalization)
  Sender: FDA-Public Use
  Company Number: 2012S1000401

PATIENT
  Age: 83 Year
  Sex: Female

DRUGS (10)
  1. ASPIRIN [Concomitant]
  2. LIVALO [Suspect]
     Indication: HYPERCHOLESTEROLAEMIA
     Dosage: 1 MG;QX; PO
     Route: 048
     Dates: start: 20081120, end: 20120311
  3. FUMARATE [Concomitant]
  4. NORVASC [Concomitant]
  5. MICARDIS [Concomitant]
  6. LASIX [Concomitant]
  7. ALISKIREN [Concomitant]
  8. ADALAT [Concomitant]
  9. MEILAX [Concomitant]
  10. PLETAL [Concomitant]

REACTIONS (4)
  - FALL [None]
  - RHABDOMYOLYSIS [None]
  - DECUBITUS ULCER [None]
  - CONTUSION [None]
